FAERS Safety Report 14484860 (Version 1)
Quarter: 2018Q1

REPORT INFORMATION
  Report Type: Spontaneous
  Country: US (occurrence: US)
  Receive Date: 20180205
  Receipt Date: 20180205
  Transmission Date: 20180509
  Serious: Yes (Hospitalization, Other)
  Sender: FDA-Public Use
  Company Number: US-PROCTER+GAMBLE-GS18010929

PATIENT

DRUGS (2)
  1. TIDELAUNDETLIQPOD [Suspect]
     Active Substance: UNSPECIFIED INGREDIENT
     Route: 048
  2. ZZZQUIL NIGHTTIME SLEEP-AID [Suspect]
     Active Substance: DIPHENHYDRAMINE HYDROCHLORIDE
     Dosage: SMALL BOTTLE
     Route: 048

REACTIONS (4)
  - Incorrect dose administered [Unknown]
  - Intentional overdose [Unknown]
  - Coma [Recovered/Resolved]
  - Intentional product use issue [Unknown]
